FAERS Safety Report 24192007 (Version 1)
Quarter: 2024Q3

REPORT INFORMATION
  Report Type: Spontaneous
  Country: US (occurrence: US)
  Receive Date: 20240809
  Receipt Date: 20240809
  Transmission Date: 20241016
  Serious: No
  Sender: PRINSTON PHARMACEUTICAL
  Company Number: US-PRINSTON PHARMACEUTICAL INC.-2024PRN00067

PATIENT
  Sex: Male

DRUGS (5)
  1. LISINOPRIL [Suspect]
     Active Substance: LISINOPRIL
     Indication: Blood pressure abnormal
     Dosage: 5 MG, 1X/DAY IN THE AM
     Dates: start: 2014
  2. LISINOPRIL [Suspect]
     Active Substance: LISINOPRIL
     Dosage: 5 MG, 2X/DAY
  3. LISINOPRIL [Suspect]
     Active Substance: LISINOPRIL
     Dosage: 10 MG, 1X/DAY IN THE MORNING
  4. LISINOPRIL [Suspect]
     Active Substance: LISINOPRIL
     Dosage: 5 MG, 1X/DAY IN THE EVENING
  5. LISINOPRIL [Suspect]
     Active Substance: LISINOPRIL
     Dosage: 10 MG, 2X/DAY

REACTIONS (3)
  - Drug ineffective [Unknown]
  - Blood pressure increased [Unknown]
  - Product quality issue [Unknown]
